FAERS Safety Report 6110936-1 (Version None)
Quarter: 2009Q1

REPORT INFORMATION
  Report Type: 
  Country: None (occurrence: None)
  Receive Date: 20090311
  Receipt Date: 20090306
  Transmission Date: 20090719
  Serious: Yes (Other)
  Sender: FDA-Public Use
  Company Number: JP-AVENTIS-200910155JP

PATIENT
  Age: 54 Year
  Sex: Female
  Weight: 55.4 kg

DRUGS (7)
  1. CLEXANE [Suspect]
     Route: 058
     Dates: start: 20090106, end: 20090111
  2. PANSPORIN [Concomitant]
     Indication: INFECTION PROPHYLAXIS
     Route: 041
     Dates: start: 20090105, end: 20090109
  3. AMOLIN                             /00249602/ [Concomitant]
     Indication: INFECTION PROPHYLAXIS
     Route: 048
     Dates: start: 20090110, end: 20090101
  4. FERROMIA                           /00023516/ [Concomitant]
     Route: 048
     Dates: start: 20090106
  5. IRZAIM [Concomitant]
     Route: 048
     Dates: start: 20090106, end: 20090119
  6. MUCOSTA [Concomitant]
     Route: 048
     Dates: start: 20090106, end: 20090119
  7. LOXONIN                            /00890701/ [Concomitant]
     Route: 048
     Dates: start: 20090106, end: 20090119

REACTIONS (4)
  - ALANINE AMINOTRANSFERASE INCREASED [None]
  - ASPARTATE AMINOTRANSFERASE INCREASED [None]
  - HEPATIC FUNCTION ABNORMAL [None]
  - LIVER INJURY [None]
